FAERS Safety Report 8257291-9 (Version None)
Quarter: 2012Q2

REPORT INFORMATION
  Report Type: 
  Country: None (occurrence: None)
  Receive Date: 20120403
  Receipt Date: 20120322
  Transmission Date: 20120825
  Serious: Yes (Hospitalization)
  Sender: FDA-Public Use
  Company Number: CA-JNJFOC-20120312206

PATIENT
  Sex: Male
  Weight: 91 kg

DRUGS (11)
  1. EFFEXOR [Concomitant]
     Route: 048
  2. CELEXA [Concomitant]
     Route: 048
  3. REMICADE [Suspect]
     Indication: CROHN'S DISEASE
     Route: 042
  4. REMICADE [Suspect]
     Route: 042
     Dates: start: 20070601
  5. SEROQUEL [Concomitant]
     Route: 065
  6. FOLIC ACID [Concomitant]
     Route: 065
  7. ATIVAN [Concomitant]
     Route: 065
  8. METHOTREXATE [Concomitant]
     Route: 065
  9. METOPROLOL SUCCINATE [Concomitant]
     Route: 065
  10. CLONAZEPAM [Concomitant]
     Route: 065
  11. VITAMIN B-12 [Concomitant]
     Route: 030

REACTIONS (3)
  - DIARRHOEA [None]
  - THROMBOPHLEBITIS [None]
  - INTESTINAL OBSTRUCTION [None]
